FAERS Safety Report 17531793 (Version 1)
Quarter: 2020Q1

REPORT INFORMATION
  Report Type: Spontaneous
  Country: JP (occurrence: JP)
  Receive Date: 20200311
  Receipt Date: 20200311
  Transmission Date: 20200409
  Serious: Yes (Hospitalization)
  Sender: FDA-Public Use
  Company Number: JP-ASTRAZENECA-2020SE36077

PATIENT
  Age: 20242 Day
  Sex: Male
  Weight: 56 kg

DRUGS (14)
  1. MYSLEE [Concomitant]
     Active Substance: ZOLPIDEM TARTRATE
     Route: 048
  2. LEXOTAN [Concomitant]
     Active Substance: BROMAZEPAM
     Route: 048
  3. SERENACE [Concomitant]
     Active Substance: HALOPERIDOL
     Route: 048
  4. PAXIL [Concomitant]
     Active Substance: PAROXETINE HYDROCHLORIDE
     Route: 048
  5. PURSENNID [Concomitant]
     Route: 048
  6. LEXOTAN [Concomitant]
     Active Substance: BROMAZEPAM
     Route: 048
  7. SOL-MELCORT [Concomitant]
     Active Substance: METHYLPREDNISOLONE SODIUM SUCCINATE
     Route: 041
     Dates: start: 20190212, end: 20190214
  8. RIZE [Concomitant]
     Active Substance: CLOTIAZEPAM
     Route: 048
  9. IMFINZI [Suspect]
     Active Substance: DURVALUMAB
     Indication: NON-SMALL CELL LUNG CANCER
     Route: 042
     Dates: start: 20190212, end: 20190226
  10. BENZALIN [Concomitant]
     Route: 048
  11. DOGMATYL [Concomitant]
     Active Substance: SULPIRIDE
     Route: 048
  12. ARTANE [Concomitant]
     Active Substance: TRIHEXYPHENIDYL HYDROCHLORIDE
     Route: 048
  13. PHENOBAL [Concomitant]
     Active Substance: PHENOBARBITAL
     Route: 048
  14. CONTOMIN [Concomitant]
     Active Substance: CHLORPROMAZINE
     Route: 048

REACTIONS (1)
  - Radiation pneumonitis [Recovering/Resolving]

NARRATIVE: CASE EVENT DATE: 20190514
